FAERS Safety Report 26002114 (Version 1)
Quarter: 2025Q4

REPORT INFORMATION
  Report Type: Spontaneous
  Country: EU (occurrence: EU)
  Receive Date: 20251105
  Receipt Date: 20251105
  Transmission Date: 20260118
  Serious: Yes (Other)
  Sender: PURDUE
  Company Number: EU-PURDUE-USA-2025-0321862

PATIENT
  Age: 65 Year
  Sex: Male
  Weight: 55.2 kg

DRUGS (37)
  1. OXYCODONE HYDROCHLORIDE [Interacting]
     Active Substance: OXYCODONE HYDROCHLORIDE
     Indication: Pain
     Dosage: 20 MILLIGRAM, DAILY
     Route: 048
     Dates: start: 20250516, end: 20250603
  2. OXYCODONE HYDROCHLORIDE [Interacting]
     Active Substance: OXYCODONE HYDROCHLORIDE
     Dosage: VARIABLE
     Route: 042
     Dates: start: 20250603, end: 20250709
  3. OXYCODONE HYDROCHLORIDE [Interacting]
     Active Substance: OXYCODONE HYDROCHLORIDE
     Dosage: 15 MILLIGRAM, DAILY
     Route: 048
     Dates: start: 20250710, end: 20250813
  4. OXYCODONE HYDROCHLORIDE [Interacting]
     Active Substance: OXYCODONE HYDROCHLORIDE
     Dosage: 40 MILLIGRAM, DAILY
     Route: 048
     Dates: start: 20250813, end: 20250818
  5. OXYCODONE HYDROCHLORIDE [Interacting]
     Active Substance: OXYCODONE HYDROCHLORIDE
     Dosage: 30 MILLIGRAM, DAILY
     Route: 048
     Dates: start: 20250818, end: 20250919
  6. OXYCODONE HYDROCHLORIDE [Interacting]
     Active Substance: OXYCODONE HYDROCHLORIDE
     Dosage: 40 MILLIGRAM, DAILY
     Route: 048
     Dates: start: 20250919, end: 20251002
  7. OXYCODONE HYDROCHLORIDE [Interacting]
     Active Substance: OXYCODONE HYDROCHLORIDE
     Dosage: 60 MILLIGRAM, DAILY
     Route: 048
     Dates: start: 20251002
  8. GABAPENTIN [Interacting]
     Active Substance: GABAPENTIN
     Indication: Pain
     Dosage: 1600 MILLIGRAM
     Route: 048
     Dates: start: 20250516, end: 20250709
  9. GABAPENTIN [Interacting]
     Active Substance: GABAPENTIN
     Dosage: 1800 MILLIGRAM, DAILY
     Route: 048
     Dates: start: 20250709, end: 20250806
  10. GABAPENTIN [Interacting]
     Active Substance: GABAPENTIN
     Dosage: 2100 MILLIGRAM, DAILY
     Route: 048
     Dates: start: 20250806, end: 20250818
  11. GABAPENTIN [Interacting]
     Active Substance: GABAPENTIN
     Dosage: 2400 MILLIGRAM, DAILY
     Route: 048
     Dates: start: 20250818, end: 20250905
  12. GABAPENTIN [Interacting]
     Active Substance: GABAPENTIN
     Dosage: 2700 MILLIGRAM, DAILY
     Route: 048
     Dates: start: 20250905, end: 20250916
  13. GABAPENTIN [Interacting]
     Active Substance: GABAPENTIN
     Dosage: 3000 MILLIGRAM, DAILY
     Route: 048
     Dates: start: 20250916, end: 20251004
  14. GABAPENTIN [Interacting]
     Active Substance: GABAPENTIN
     Dosage: 3100 MILLIGRAM, DAILY
     Route: 048
     Dates: start: 20251004, end: 20251010
  15. AMITRIPTYLINE HYDROCHLORIDE [Interacting]
     Active Substance: AMITRIPTYLINE HYDROCHLORIDE
     Indication: Pain
     Dosage: 5 MILLIGRAM, DAILY
     Route: 048
     Dates: start: 20250610, end: 20250808
  16. AMITRIPTYLINE HYDROCHLORIDE [Interacting]
     Active Substance: AMITRIPTYLINE HYDROCHLORIDE
     Dosage: 6 MILLIGRAM, DAILY
     Route: 048
     Dates: start: 20250808, end: 20250813
  17. AMITRIPTYLINE HYDROCHLORIDE [Interacting]
     Active Substance: AMITRIPTYLINE HYDROCHLORIDE
     Dosage: 8 MILLIGRAM, DAILY
     Route: 048
     Dates: start: 20250813, end: 20250901
  18. AMITRIPTYLINE HYDROCHLORIDE [Interacting]
     Active Substance: AMITRIPTYLINE HYDROCHLORIDE
     Dosage: 15 MILLIGRAM, DAILY
     Route: 048
     Dates: start: 20250901, end: 20250922
  19. AMITRIPTYLINE HYDROCHLORIDE [Interacting]
     Active Substance: AMITRIPTYLINE HYDROCHLORIDE
     Dosage: 20 MILLIGRAM, DAILY
     Route: 048
     Dates: start: 20250922, end: 20250927
  20. AMITRIPTYLINE HYDROCHLORIDE [Interacting]
     Active Substance: AMITRIPTYLINE HYDROCHLORIDE
     Dosage: 25 MILLIGRAM, DAILY
     Route: 048
     Dates: start: 20250927
  21. DULOXETINE HYDROCHLORIDE [Interacting]
     Active Substance: DULOXETINE HYDROCHLORIDE
     Indication: Pain
     Dosage: 60 MILLIGRAM
     Route: 048
     Dates: start: 20250821, end: 20250917
  22. DULOXETINE HYDROCHLORIDE [Interacting]
     Active Substance: DULOXETINE HYDROCHLORIDE
     Dosage: 90 MILLIGRAM, DAILY
     Route: 048
     Dates: start: 20250917
  23. NEFOPAM HYDROCHLORIDE [Interacting]
     Active Substance: NEFOPAM HYDROCHLORIDE
     Indication: Pain
     Dosage: 120 MILLIGRAM, DAILY
     Route: 048
     Dates: start: 20250603
  24. OXAZEPAM [Interacting]
     Active Substance: OXAZEPAM
     Indication: Anxiety
     Dosage: 10 MILLIGRAM
     Route: 048
     Dates: start: 20250605, end: 20250812
  25. OXAZEPAM [Interacting]
     Active Substance: OXAZEPAM
     Dosage: 20 MILLIGRAM, DAILY
     Route: 048
     Dates: start: 20250812, end: 20250821
  26. OXAZEPAM [Interacting]
     Active Substance: OXAZEPAM
     Dosage: 10 MILLIGRAM, DAILY
     Route: 048
     Dates: start: 20250821
  27. NALOXEGOL OXALATE [Concomitant]
     Active Substance: NALOXEGOL OXALATE
     Indication: Prophylaxis
     Dosage: 25 MILLIGRAM, DAILY
     Route: 048
     Dates: start: 20250623
  28. KARDEGIC [Concomitant]
     Active Substance: ASPIRIN DL-LYSINE
     Indication: Peripheral arterial occlusive disease
     Dosage: 75 MILLIGRAM, DAILY
     Route: 048
  29. ALFUZOSIN HYDROCHLORIDE [Concomitant]
     Active Substance: ALFUZOSIN HYDROCHLORIDE
     Indication: Peripheral arterial occlusive disease
     Dosage: 10 MILLIGRAM, DAILY
     Route: 048
     Dates: start: 20250421
  30. ATORVASTATIN [Concomitant]
     Active Substance: ATORVASTATIN
     Indication: Dyslipidaemia
     Dosage: 20 MILLIGRAM, DAILY
     Route: 048
  31. LANSOPRAZOLE [Concomitant]
     Active Substance: LANSOPRAZOLE
     Indication: Prophylaxis
     Dosage: 15 MILLIGRAM, DAILY
     Route: 048
     Dates: start: 20250421
  32. MELATONIN [Concomitant]
     Active Substance: MELATONIN
     Indication: Insomnia
     Dosage: 2 MILLIGRAM, DAILY
     Route: 048
     Dates: start: 20250421
  33. ACETAMINOPHEN [Concomitant]
     Active Substance: ACETAMINOPHEN
     Indication: Pain
     Dosage: 1000 MILLIGRAM
     Route: 048
  34. NICOTINE [Concomitant]
     Active Substance: NICOTINE
     Indication: Nicotine dependence
     Dosage: 21 MILLIGRAM, DAILY
     Route: 062
     Dates: start: 20250422, end: 20250502
  35. NICOTINE [Concomitant]
     Active Substance: NICOTINE
     Dosage: 28 MILLIGRAM, DAILY
     Route: 062
     Dates: start: 20250502, end: 20250602
  36. NICOTINE [Concomitant]
     Active Substance: NICOTINE
     Dosage: 49 MILLIGRAM, DAILY
     Route: 062
     Dates: start: 20250602
  37. INNOHEP [Concomitant]
     Active Substance: TINZAPARIN SODIUM
     Indication: Product used for unknown indication
     Dosage: 1 DOSAGE FORM, DAILY
     Route: 058
     Dates: start: 20250317, end: 20251013

REACTIONS (5)
  - Confusional state [Recovered/Resolved]
  - Disorientation [Recovered/Resolved]
  - Hallucination [Recovered/Resolved]
  - Mood swings [Not Recovered/Not Resolved]
  - Drug interaction [Not Recovered/Not Resolved]

NARRATIVE: CASE EVENT DATE: 20251010
